FAERS Safety Report 5007061-X (Version None)
Quarter: 2006Q1

REPORT INFORMATION
  Report Type: 
  Country: None (occurrence: None)
  Receive Date: 20060320
  Receipt Date: 20050707
  Transmission Date: 20060701
  Serious: Yes (Other)
  Sender: FDA-Public Use
  Company Number: 2005-07-0501

PATIENT
  Age: 49 Year
  Sex: Female
  Weight: 76.6579 kg

DRUGS (4)
  1. PEG-INTRON [Suspect]
     Indication: HEPATITIS C
     Dosage: SEE IMAGE
     Route: 058
     Dates: start: 20050220
  2. RIBAVIRIN [Suspect]
     Indication: HEPATITIS C
     Dosage: 1000 MG QD ORAL
     Route: 048
     Dates: start: 20050220
  3. PREMPRO [Concomitant]
  4. MULTIVITAMINS TABLETS ORAL [Concomitant]

REACTIONS (3)
  - DYSPNOEA [None]
  - VASCULITIS [None]
  - WEIGHT DECREASED [None]
